FAERS Safety Report 16917898 (Version 1)
Quarter: 2019Q4

REPORT INFORMATION
  Report Type: Spontaneous
  Country: FR (occurrence: FR)
  Receive Date: 20191015
  Receipt Date: 20191015
  Transmission Date: 20200122
  Serious: Yes (Hospitalization)
  Sender: FDA-Public Use
  Company Number: FR-TEVA-2019-FR-1121254

PATIENT
  Age: 86 Year
  Sex: Male

DRUGS (6)
  1. SOTALOL (CHLORHYDRATE DE) [Suspect]
     Active Substance: SOTALOL
     Indication: HYPERTENSION
     Dosage: 320 MG
     Route: 048
  2. OMEPRAZOLE. [Concomitant]
     Active Substance: OMEPRAZOLE
     Dosage: 20 MG
     Route: 048
  3. SERETIDE [Concomitant]
     Active Substance: FLUTICASONE PROPIONATE\SALMETEROL XINAFOATE
     Dosage: 1 DOSAGE FORM
     Route: 055
  4. ZOFENILDUO 30 MG/12.5 MG, FILMED TABLET [Suspect]
     Active Substance: HYDROCHLOROTHIAZIDE\ZOFENOPRIL
     Indication: HYPERTENSION
     Dosage: 1 DOSAGE FORM
     Route: 048
  5. FLUINDIONE [Concomitant]
     Active Substance: FLUINDIONE
     Indication: ATRIAL FIBRILLATION
     Dosage: 10 MG
     Route: 048
     Dates: end: 20190220
  6. BECLOMETASONE (DIPROPIONATE DE) [Concomitant]
     Dosage: 500 MICROGRAM
     Route: 055

REACTIONS (4)
  - Fall [Recovered/Resolved]
  - Syncope [Recovered/Resolved]
  - Loss of consciousness [Recovered/Resolved]
  - Hypotension [Recovered/Resolved]

NARRATIVE: CASE EVENT DATE: 20190220
